FAERS Safety Report 7824069-7 (Version None)
Quarter: 2011Q4

REPORT INFORMATION
  Report Type: 
  Country: None (occurrence: None)
  Receive Date: 20111019
  Receipt Date: 20111009
  Transmission Date: 20120403
  Serious: Yes (Other)
  Sender: FDA-Public Use
  Company Number: PHHY2011GB89672

PATIENT
  Age: 55 Year
  Sex: Female

DRUGS (2)
  1. RADIOTHERAPY [Concomitant]
  2. LETROZOLE [Suspect]

REACTIONS (4)
  - METASTASES TO BONE [None]
  - HEPATIC LESION [None]
  - NEOPLASM PROGRESSION [None]
  - NEOPLASM MALIGNANT [None]
